FAERS Safety Report 16822268 (Version 2)
Quarter: 2019Q3

REPORT INFORMATION
  Report Type: Report from Study
  Country: GB (occurrence: GB)
  Receive Date: 20190918
  Receipt Date: 20190927
  Transmission Date: 20191005
  Serious: Yes (Death, Hospitalization, Other)
  Sender: FDA-Public Use
  Company Number: GB-TAKEDA-2019TUS052649

PATIENT
  Sex: Male
  Weight: 60 kg

DRUGS (3)
  1. MELPHALAN. [Suspect]
     Active Substance: MELPHALAN
     Dosage: 100 MILLIGRAM/SQ. METER
     Route: 042
     Dates: start: 20190903
  2. IXAZOMIB [Suspect]
     Active Substance: IXAZOMIB
     Indication: PLASMA CELL MYELOMA
     Dosage: 4 MILLIGRAM
     Route: 048
     Dates: start: 20190227
  3. MELPHALAN. [Suspect]
     Active Substance: MELPHALAN
     Indication: PLASMA CELL MYELOMA
     Dosage: 200 MILLIGRAM/SQ. METER
     Route: 042
     Dates: start: 20190316

REACTIONS (1)
  - Neutropenic sepsis [Fatal]

NARRATIVE: CASE EVENT DATE: 20190904
